FAERS Safety Report 13558346 (Version 2)
Quarter: 2017Q2

REPORT INFORMATION
  Report Type: Spontaneous
  Country: BE (occurrence: BE)
  Receive Date: 20170517
  Receipt Date: 20170622
  Transmission Date: 20170830
  Serious: Yes (Other)
  Sender: FDA-Public Use
  Company Number: ALCN2017BE003303

PATIENT
  Sex: Male

DRUGS (2)
  1. SIMBRINZA [Suspect]
     Active Substance: BRIMONIDINE TARTRATE\BRINZOLAMIDE
     Indication: GLAUCOMA
     Dosage: UNK
     Route: 047
     Dates: start: 201703, end: 201703
  2. MONOPROST [Concomitant]
     Active Substance: LATANOPROST
     Indication: PRODUCT USED FOR UNKNOWN INDICATION
     Route: 065

REACTIONS (1)
  - Uveitis [Recovered/Resolved]

NARRATIVE: CASE EVENT DATE: 201703
